FAERS Safety Report 8984429 (Version 1)
Quarter: 2012Q4

REPORT INFORMATION
  Report Type: Spontaneous
  Country: DK (occurrence: None)
  Receive Date: 20121217
  Receipt Date: 20121217
  Transmission Date: 20130627
  Serious: Yes (Life-Threatening, Hospitalization, Other)
  Sender: FDA-Public Use
  Company Number: 2012MA013947

PATIENT
  Age: 88 Year
  Sex: Male

DRUGS (8)
  1. SERTRALINE HYDROCHLORIDE TABLETS [Suspect]
     Indication: DEPRESSION
     Route: 048
     Dates: start: 20120821, end: 20121009
  2. TRIMETHOPRIM [Suspect]
     Route: 048
     Dates: start: 20120915, end: 20120918
  3. TRIMETHOPRIM [Suspect]
     Route: 048
     Dates: start: 20120920, end: 20120928
  4. TAMSULOSIN [Concomitant]
  5. FOLIC ACID [Concomitant]
  6. AMLODIPINE [Concomitant]
  7. CLOPIDOGREL [Concomitant]
  8. TEMAZEPAM [Concomitant]

REACTIONS (4)
  - Neutropenia [None]
  - Agranulocytosis [None]
  - Sepsis [None]
  - Infection [None]
